FAERS Safety Report 10149434 (Version 2)
Quarter: 2014Q3

REPORT INFORMATION
  Report Type: Report from Study
  Country: JP (occurrence: None)
  Receive Date: 20140430
  Receipt Date: 20140806
  Transmission Date: 20150326
  Serious: Yes (Hospitalization)
  Sender: FDA-Public Use
  Company Number: B140417012

PATIENT
  Age: 2 Year
  Sex: Female

DRUGS (29)
  1. ARGI-U (L-ARGININE, L-ARGININE HYDROCHLORIDE) [Concomitant]
  2. CHRICINE (DIAZEPAM) [Concomitant]
  3. PRECEDEX (DEXMEDETOMIDINE HYDROCHLORIDE) [Concomitant]
  4. STRONGER MINOPHAGEN C (MONOAMMONIUM GLUCYRRHIZINATE, GLYCINE, L-CYSTEINE HYDROCHLORIDE HYDRATE) [Concomitant]
  5. SODIUM BENZOALE (INJECTION) [Concomitant]
  6. SODIUM PHOSPHATE (DIBASIC SODIUM PHOSPHATE HYDRATE, SODIUM DIHYDROGEN PHOSPHATE HYDRATE) [Concomitant]
  7. SODIUM CHLORIDE. [Concomitant]
     Active Substance: SODIUM CHLORIDE
  8. GASTER [Concomitant]
     Active Substance: FAMOTIDINE
  9. OTSUKA  MV (THIAMINE CHLORIDE, RIBOFLAVIN SODIUM PHOSPHATE, PYRIDOXINE HYDROCHLORIDE, CYANOCOBALAMIN, NICOTINAMIDE, FOLIC CID, ASSORBIC ACID, PANTHENOL, BIOTIN, VITAMIN A OIL, CHOLECALCIFEROL, TOCOPHEROL ACETATE, PHYTONACLIONE [Concomitant]
  10. LUPIAL (PHENOBARBITAL SODIUM) [Concomitant]
  11. TRICLORYL (TICLOFOS SODIUM) [Concomitant]
  12. MONILAC (LACTULOSE) [Concomitant]
  13. PHENOBAL (PHENOBARBITAL) [Concomitant]
  14. OMEPRAL (OMEPRAZOLE) [Concomitant]
     Active Substance: OMEPRAZOLE
  15. VOLVIX (FERRIC CHLORIDE, MANGANESE CHLORIDE, ZINC SULATE HYDRATE) [Concomitant]
  16. MIDAZOLAM [Concomitant]
     Active Substance: MIDAZOLAM\MIDAZOLAM HYDROCHLORIDE
  17. PLEAMIN-P (L-ISOLEUCINE, L-LEUCINE, L-LYSINE ACETATE, L-METHIONINE, L-PHENYLALANINE, L-THREONINE, L-TRUPTOPHAN, L-VALINE, L-ARGININE, L-HISTIDINE, L-GLYCINE, L-ALANINE, L-GLUTAMIC ACID, L-ASPARTIC ACID, L-PROLINE, L-SERINE, L-TYROSINE, L-CYSTEINE, TAURINE [Concomitant]
  18. LASIX [Concomitant]
     Active Substance: FUROSEMIDE
  19. VICCILLIN (AMPICILLIN SODIUM) [Concomitant]
  20. SATO SALBE (ZINC OXIDE) [Concomitant]
  21. MAGNESIUM SULFATE  (MAGNESIUM SULFATE HYDRATE) [Concomitant]
  22. ESLAX ( ROCORONIUM BROMIDE) [Concomitant]
  23. ATROPINE (ATROPINE SULFATE) [Concomitant]
  24. BUPHENYL [Suspect]
     Active Substance: SODIUM PHENYLBUTYRATE
     Indication: AMINO ACID METABOLISM DISORDER
     Route: 048
     Dates: start: 20130222, end: 20130223
  25. POTASSIUM CHLORIDE. [Concomitant]
     Active Substance: POTASSIUM CHLORIDE
  26. ANHIBA (ACETAMINOPHEN) [Concomitant]
  27. PROPETO (WHILE PETROLATUM) [Concomitant]
  28. SOLITAX-H (SODIUM CHLORIDE, POTASSIUM CHLORIDE, CALCIUM CHLORIDE HYDRATE, MAGNESIUM CHLORIDE, POTASSIUM GLYCERYLPHOSPHATE, L-SODIUIM LACTATE, GLUCOSE) [Concomitant]
  29. VENN-F (SODIUM CHLORIDE, POTASSIUM CHLORIDE, CALCIUM CHLORIDE HYDRATE, SODIUM ACETATE HYDRATE) [Concomitant]

REACTIONS (4)
  - Renal tubular acidosis [None]
  - Urinary tract infection [None]
  - Oedema [None]
  - Hyperglycaemia [None]

NARRATIVE: CASE EVENT DATE: 20130223
